FAERS Safety Report 5506992-1 (Version None)
Quarter: 2007Q4

REPORT INFORMATION
  Report Type: 
  Country: None (occurrence: None)
  Receive Date: 20071105
  Receipt Date: 20071015
  Transmission Date: 20080405
  Serious: No
  Sender: FDA-Public Use
  Company Number: US-BOEHRINGER INGELHEIM PHARMACEUTICALS, INC.-2007-BP-22824BP

PATIENT
  Age: 61 Year
  Sex: Male

DRUGS (8)
  1. FLOMAX [Suspect]
     Indication: BENIGN PROSTATIC HYPERPLASIA
     Route: 048
     Dates: start: 20070701
  2. FLOMAX [Suspect]
     Indication: NOCTURIA
  3. FLOMAX [Suspect]
     Indication: URINARY HESITATION
  4. LYRICA [Concomitant]
     Indication: BACK PAIN
     Route: 048
  5. LYRICA [Concomitant]
     Indication: NERVE INJURY
  6. LIPITOR [Concomitant]
     Indication: BLOOD CHOLESTEROL
  7. MULTI-VITAMIN [Concomitant]
  8. SUPER B COMPLEX [Concomitant]

REACTIONS (3)
  - DRUG INEFFECTIVE [None]
  - RHINORRHOEA [None]
  - SEMEN VOLUME DECREASED [None]
